FAERS Safety Report 21573643 (Version 3)
Quarter: 2025Q1

REPORT INFORMATION
  Report Type: Report from Study
  Country: DE (occurrence: DE)
  Receive Date: 20221109
  Receipt Date: 20250314
  Transmission Date: 20250409
  Serious: Yes (Death, Other)
  Sender: PFIZER
  Company Number: DE-PFM-2022-08072

PATIENT
  Age: 73 Year
  Sex: Male
  Weight: 79 kg

DRUGS (12)
  1. BRAFTOVI [Suspect]
     Active Substance: ENCORAFENIB
     Indication: BRAF gene mutation
     Dosage: 300 MG/DAY
     Route: 048
     Dates: start: 20220727
  2. BRAFTOVI [Suspect]
     Active Substance: ENCORAFENIB
     Indication: Colorectal cancer
     Route: 048
     Dates: start: 20220928, end: 20221024
  3. CETUXIMAB [Suspect]
     Active Substance: CETUXIMAB
     Indication: Colorectal cancer
     Dosage: 250 MG/M2, WEEKLY; LIQUID DILUTION
     Route: 042
     Dates: start: 20220727, end: 20221019
  4. LOPERAMIDE [Concomitant]
     Active Substance: LOPERAMIDE
     Route: 048
     Dates: start: 2022, end: 2022
  5. ALIZAPRIDE HYDROCHLORIDE [Concomitant]
     Active Substance: ALIZAPRIDE HYDROCHLORIDE
     Route: 048
     Dates: start: 2022, end: 2022
  6. DOXYCYCLIN [DOXYCYCLINE HYDROCHLORIDE] [Concomitant]
     Indication: Prophylaxis
     Dosage: 100 MG,DAILY
     Route: 048
     Dates: start: 2022, end: 202210
  7. HYDROCORTISONE [Concomitant]
     Active Substance: HYDROCORTISONE
     Route: 062
  8. DEXAMETHASONE [Concomitant]
     Active Substance: DEXAMETHASONE
     Indication: Prophylaxis
     Dosage: 8 MG, WEEKLY BEFORE CETUXIMAB
     Route: 042
     Dates: start: 20220727, end: 20221019
  9. DIMETHINDENE [Concomitant]
     Active Substance: DIMETHINDENE
     Indication: Prophylaxis
     Dosage: 4 MG, WEEKLY, BEFORE CETUXIMAB
     Route: 042
     Dates: start: 20220727, end: 20221019
  10. CIMETIDINE [Concomitant]
     Active Substance: CIMETIDINE
     Indication: Prophylaxis
     Dosage: 400 MG, WEEKLY
     Route: 048
     Dates: start: 20220727, end: 20221019
  11. MINOCYCLINE [Concomitant]
     Active Substance: MINOCYCLINE HYDROCHLORIDE
     Route: 065
     Dates: start: 20220727
  12. HYDROMORPHONE HYDROCHLORIDE [Concomitant]
     Active Substance: HYDROMORPHONE HYDROCHLORIDE
     Indication: Tumour pain
     Dosage: 2 X 4 MG, IF NECESSARY EVERY 6 HOURS 1,3 MG
     Route: 065
     Dates: start: 20221012

REACTIONS (2)
  - Eastern Cooperative Oncology Group performance status worsened [Fatal]
  - Hepatic failure [Not Recovered/Not Resolved]

NARRATIVE: CASE EVENT DATE: 20220928
